FAERS Safety Report 8975844 (Version 1)
Quarter: 2012Q4

REPORT INFORMATION
  Report Type: 
  Country: US (occurrence: US)
  Receive Date: 20121219
  Receipt Date: 20121219
  Transmission Date: 20130627
  Serious: Yes (Other)
  Sender: FDA-Public Use
  Company Number: CHPA2012US025081

PATIENT
  Age: 55 Year
  Sex: Male

DRUGS (2)
  1. MAALOX ANTACID/ANTIGAS RS LIQ COOL MINT [Suspect]
     Indication: DYSPEPSIA
     Dosage: Unk, Unk
     Route: 048
  2. KLONOPIN [Concomitant]

REACTIONS (4)
  - Nephrolithiasis [Recovered/Resolved]
  - Wrong technique in drug usage process [Unknown]
  - Therapeutic response decreased [Unknown]
  - Expired drug administered [Unknown]
